FAERS Safety Report 12147081 (Version 1)
Quarter: 2016Q1

REPORT INFORMATION
  Report Type: Spontaneous
  Country: US (occurrence: US)
  Receive Date: 20160304
  Receipt Date: 20160304
  Transmission Date: 20160526
  Serious: No
  Sender: FDA-Public Use
  Company Number: US-INDIVIOR LIMITED-RB-082856-2015

PATIENT
  Sex: Female

DRUGS (71)
  1. BUPRENORPHINE/NALOXONE [Suspect]
     Active Substance: BUPRENORPHINE\NALOXONE
     Indication: PRODUCT USED FOR UNKNOWN INDICATION
     Dosage: UNK
     Route: 065
  2. MORPHINE [Suspect]
     Active Substance: MORPHINE
     Indication: PRODUCT USED FOR UNKNOWN INDICATION
     Dosage: UNK
     Route: 065
  3. CLONIDINE. [Concomitant]
     Active Substance: CLONIDINE
     Dosage: 0.1 MG,ONCE
     Route: 048
     Dates: start: 20130404, end: 20130404
  4. CLONIDINE. [Concomitant]
     Active Substance: CLONIDINE
     Dosage: 0.1 MG,ONCE
     Route: 048
     Dates: start: 20130406, end: 20130406
  5. HYDROXYZINE [Concomitant]
     Active Substance: HYDROXYZINE\HYDROXYZINE HYDROCHLORIDE
     Dosage: 100 MG
     Route: 048
     Dates: start: 20130104, end: 20130104
  6. HYDROXYZINE [Concomitant]
     Active Substance: HYDROXYZINE\HYDROXYZINE HYDROCHLORIDE
     Dosage: ONCE;100 MG
     Route: 048
     Dates: start: 20130308, end: 20130308
  7. CLONIDINE. [Concomitant]
     Active Substance: CLONIDINE
     Indication: ANXIETY
     Dosage: 0.2 MG,ONCE
     Route: 048
     Dates: start: 20121230, end: 20121230
  8. CLONIDINE. [Concomitant]
     Active Substance: CLONIDINE
     Dosage: 0.2 MG,ONCE
     Route: 048
     Dates: start: 20130108, end: 20130108
  9. CLONIDINE. [Concomitant]
     Active Substance: CLONIDINE
     Dosage: 0.2 MG,ONCE
     Route: 048
     Dates: start: 20130112, end: 20130112
  10. CLONIDINE. [Concomitant]
     Active Substance: CLONIDINE
     Dosage: 0.2 MG,ONCE
     Route: 048
     Dates: start: 20130208, end: 20130207
  11. HYDROXYZINE [Concomitant]
     Active Substance: HYDROXYZINE\HYDROXYZINE HYDROCHLORIDE
     Dosage: 100 MG
     Route: 048
     Dates: start: 20130106, end: 20130106
  12. HYDROXYZINE [Concomitant]
     Active Substance: HYDROXYZINE\HYDROXYZINE HYDROCHLORIDE
     Dosage: 100 MG
     Route: 048
     Dates: start: 20130107, end: 20130107
  13. HYDROXYZINE [Concomitant]
     Active Substance: HYDROXYZINE\HYDROXYZINE HYDROCHLORIDE
     Dosage: 100 MG ONCE
     Route: 048
     Dates: start: 20130207, end: 20130207
  14. HYDROXYZINE [Concomitant]
     Active Substance: HYDROXYZINE\HYDROXYZINE HYDROCHLORIDE
     Dosage: ONCE;100 MG
     Route: 048
     Dates: start: 20130404, end: 20130404
  15. RBP-6000 [Suspect]
     Active Substance: BUPRENORPHINE
     Indication: PRODUCT USED FOR UNKNOWN INDICATION
     Dosage: 200 MG, UNK
     Route: 058
     Dates: start: 20130111, end: 20130111
  16. PHENCYCLIDINE [Suspect]
     Active Substance: PHENCYCLIDINE
     Indication: PRODUCT USED FOR UNKNOWN INDICATION
  17. HEROIN [Suspect]
     Active Substance: DIACETYLMORPHINE
     Indication: PRODUCT USED FOR UNKNOWN INDICATION
     Dosage: UNK
     Route: 065
  18. CODEINE [Suspect]
     Active Substance: CODEINE
     Indication: PRODUCT USED FOR UNKNOWN INDICATION
     Dosage: UNK
     Route: 065
  19. CLONIDINE. [Concomitant]
     Active Substance: CLONIDINE
     Dosage: 0.2 MG,ONCE
     Route: 048
     Dates: start: 20130111, end: 20130111
  20. CLONIDINE. [Concomitant]
     Active Substance: CLONIDINE
     Dosage: 0.2 MG,ONCE
     Route: 048
     Dates: start: 20130207, end: 20130207
  21. CLONIDINE. [Concomitant]
     Active Substance: CLONIDINE
     Dosage: 0.2 MG,ONCE
     Route: 048
     Dates: start: 20130308, end: 20130308
  22. HYDROXYZINE [Concomitant]
     Active Substance: HYDROXYZINE\HYDROXYZINE HYDROCHLORIDE
     Dosage: 100 MG
     Route: 048
     Dates: start: 20130105, end: 20130105
  23. HYDROXYZINE [Concomitant]
     Active Substance: HYDROXYZINE\HYDROXYZINE HYDROCHLORIDE
     Dosage: 100 MG
     Route: 048
     Dates: start: 20130113, end: 20130113
  24. METHOCARBAMOL. [Concomitant]
     Active Substance: METHOCARBAMOL
     Indication: DRUG DEPENDENCE
  25. CLONIDINE. [Concomitant]
     Active Substance: CLONIDINE
     Indication: IRRITABILITY
     Dosage: 0.2 MG,ONCE
     Route: 048
     Dates: start: 20121231, end: 20121231
  26. CLONIDINE. [Concomitant]
     Active Substance: CLONIDINE
     Dosage: UNK
  27. HYDROXYZINE [Concomitant]
     Active Substance: HYDROXYZINE\HYDROXYZINE HYDROCHLORIDE
     Indication: IRRITABILITY
     Dosage: 100 MG
     Route: 048
     Dates: start: 20121231, end: 20121231
  28. HYDROXYZINE [Concomitant]
     Active Substance: HYDROXYZINE\HYDROXYZINE HYDROCHLORIDE
     Dosage: 100 MG
     Route: 048
     Dates: start: 20130102, end: 20130102
  29. HYDROXYZINE [Concomitant]
     Active Substance: HYDROXYZINE\HYDROXYZINE HYDROCHLORIDE
     Dosage: 100 MG
     Route: 048
     Dates: start: 20130110, end: 20130110
  30. HYDROXYZINE [Concomitant]
     Active Substance: HYDROXYZINE\HYDROXYZINE HYDROCHLORIDE
     Dosage: 100 MG ONCE
     Route: 048
     Dates: start: 20130208, end: 20130208
  31. HYDROXYZINE [Concomitant]
     Active Substance: HYDROXYZINE\HYDROXYZINE HYDROCHLORIDE
     Dosage: 100 MG ONCE
     Route: 048
     Dates: start: 20130209, end: 20130209
  32. HYDROXYZINE [Concomitant]
     Active Substance: HYDROXYZINE\HYDROXYZINE HYDROCHLORIDE
     Dosage: ONCE;100 MG
     Route: 048
     Dates: start: 20130210, end: 20130210
  33. HYDROXYZINE [Concomitant]
     Active Substance: HYDROXYZINE\HYDROXYZINE HYDROCHLORIDE
     Dosage: ONCE;100 MG
     Route: 048
     Dates: start: 20130405, end: 20130405
  34. HYDROXYZINE [Concomitant]
     Active Substance: HYDROXYZINE\HYDROXYZINE HYDROCHLORIDE
     Dosage: ONCE;100 MG
     Route: 048
     Dates: start: 20130406, end: 20130406
  35. MENTHOLATUM                        /00543601/ [Concomitant]
     Indication: UPPER RESPIRATORY TRACT INFECTION
     Dosage: 1 APPLICATION PRN
     Route: 061
     Dates: start: 20130521
  36. CANNABIS [Suspect]
     Active Substance: CANNABIS SATIVA SUBSP. INDICA TOP
     Indication: PRODUCT USED FOR UNKNOWN INDICATION
     Dosage: UNK
     Route: 065
  37. OPIOIDS [Suspect]
     Active Substance: UNSPECIFIED INGREDIENT
     Indication: PRODUCT USED FOR UNKNOWN INDICATION
     Dosage: UNK
     Route: 065
  38. CLONIDINE. [Concomitant]
     Active Substance: CLONIDINE
     Dosage: 0.2 MG,ONCE
     Route: 048
     Dates: start: 20130106, end: 20130106
  39. CLONIDINE. [Concomitant]
     Active Substance: CLONIDINE
     Dosage: 0.2 MG,ONCE
     Route: 048
     Dates: start: 20130107, end: 20130107
  40. CLONIDINE. [Concomitant]
     Active Substance: CLONIDINE
     Dosage: 0.2 MG,ONCE
     Route: 048
     Dates: start: 20130109, end: 20130109
  41. HYDROXYZINE [Concomitant]
     Active Substance: HYDROXYZINE\HYDROXYZINE HYDROCHLORIDE
     Dosage: 100 MG
     Route: 048
     Dates: start: 20130103, end: 20130103
  42. HYDROXYZINE [Concomitant]
     Active Substance: HYDROXYZINE\HYDROXYZINE HYDROCHLORIDE
     Dosage: 50 MG, PRN
     Route: 048
     Dates: start: 20130113, end: 20130531
  43. METHOCARBAMOL. [Concomitant]
     Active Substance: METHOCARBAMOL
     Indication: MUSCULOSKELETAL PAIN
     Dosage: 750 MG, PRN
     Route: 048
     Dates: start: 20121230, end: 20130531
  44. RBP-6000 [Suspect]
     Active Substance: BUPRENORPHINE
     Dosage: 200 MG,UNK
     Route: 058
     Dates: start: 20130208, end: 20130208
  45. RBP-6000 [Suspect]
     Active Substance: BUPRENORPHINE
     Dosage: 200 MG,UNK
     Route: 058
     Dates: start: 20130308, end: 20130308
  46. RBP-6000 [Suspect]
     Active Substance: BUPRENORPHINE
     Dosage: 200 MG,UNK
     Route: 058
     Dates: start: 20130405, end: 20130405
  47. TETRAHYDROCANNABINOL-THC [Suspect]
     Active Substance: DRONABINOL
     Indication: PRODUCT USED FOR UNKNOWN INDICATION
     Dosage: UNK
     Route: 065
  48. CLONIDINE. [Concomitant]
     Active Substance: CLONIDINE
     Dosage: 0.2 MG,ONCE
     Route: 048
     Dates: start: 20130101, end: 20130101
  49. CLONIDINE. [Concomitant]
     Active Substance: CLONIDINE
     Dosage: 0.1 MG,ONCE
     Route: 048
     Dates: start: 20130309, end: 20130309
  50. HYDROXYZINE [Concomitant]
     Active Substance: HYDROXYZINE\HYDROXYZINE HYDROCHLORIDE
     Dosage: 100 MG,QD
     Route: 048
     Dates: start: 20130209, end: 20130209
  51. SUBUTEX [Suspect]
     Active Substance: BUPRENORPHINE HYDROCHLORIDE
     Indication: DRUG DEPENDENCE
     Dosage: 24 MG
     Route: 060
  52. BENZODIAZEPINE DERIVATIVES [Suspect]
     Active Substance: BENZODIAZEPINE
     Indication: PRODUCT USED FOR UNKNOWN INDICATION
     Dosage: UNK
     Route: 065
  53. OXAZEPAM. [Suspect]
     Active Substance: OXAZEPAM
     Indication: PRODUCT USED FOR UNKNOWN INDICATION
     Dosage: UNK
     Route: 065
  54. HYDROXYZINE [Concomitant]
     Active Substance: HYDROXYZINE\HYDROXYZINE HYDROCHLORIDE
     Indication: ANXIETY
     Dosage: 100 MG
     Route: 048
     Dates: start: 20121230, end: 20121230
  55. HYDROXYZINE [Concomitant]
     Active Substance: HYDROXYZINE\HYDROXYZINE HYDROCHLORIDE
     Dosage: 100 MG
     Route: 048
     Dates: start: 20130108, end: 20130108
  56. HYDROXYZINE [Concomitant]
     Active Substance: HYDROXYZINE\HYDROXYZINE HYDROCHLORIDE
     Dosage: 100 MG
     Route: 048
     Dates: start: 20130109, end: 20130109
  57. HYDROXYZINE [Concomitant]
     Active Substance: HYDROXYZINE\HYDROXYZINE HYDROCHLORIDE
     Dosage: ONCE;100 MG
     Route: 048
     Dates: start: 20130307, end: 20130307
  58. HYDROXYZINE [Concomitant]
     Active Substance: HYDROXYZINE\HYDROXYZINE HYDROCHLORIDE
     Dosage: ONCE;100 MG
     Route: 048
     Dates: start: 20130309, end: 20130309
  59. IBUPROFEN. [Concomitant]
     Active Substance: IBUPROFEN
     Dosage: 200 MG, PRN
     Route: 048
     Dates: start: 20130416, end: 20130524
  60. MILK OF MAGNESIA [Concomitant]
     Active Substance: MAGNESIUM HYDROXIDE
     Indication: CONSTIPATION
     Dosage: 10 ML, ONE TIME DOSE
     Route: 048
     Dates: start: 20130109, end: 20130109
  61. ALBUTEROL                          /00139501/ [Concomitant]
     Active Substance: ALBUTEROL
     Indication: UPPER RESPIRATORY TRACT INFECTION
     Dosage: 1 PUFF,QD
     Route: 055
     Dates: start: 20130521
  62. METHADONE [Suspect]
     Active Substance: METHADONE HYDROCHLORIDE
     Indication: PRODUCT USED FOR UNKNOWN INDICATION
     Dosage: UNK
     Route: 065
  63. CLONIDINE. [Concomitant]
     Active Substance: CLONIDINE
     Dosage: 0.2 MG,ONCE
     Route: 048
     Dates: start: 20130102, end: 20130102
  64. CLONIDINE. [Concomitant]
     Active Substance: CLONIDINE
     Dosage: 0.2 MG,ONCE
     Route: 048
     Dates: start: 20130110, end: 20130110
  65. CLONIDINE. [Concomitant]
     Active Substance: CLONIDINE
     Dosage: 0.1 MG,ONCE
     Route: 048
     Dates: start: 20130405, end: 20130405
  66. HYDROXYZINE [Concomitant]
     Active Substance: HYDROXYZINE\HYDROXYZINE HYDROCHLORIDE
     Dosage: 100 MG
     Route: 048
     Dates: start: 20130101, end: 20130101
  67. HYDROXYZINE [Concomitant]
     Active Substance: HYDROXYZINE\HYDROXYZINE HYDROCHLORIDE
     Dosage: 100 MG
     Route: 048
     Dates: start: 20130111, end: 20130111
  68. HYDROXYZINE [Concomitant]
     Active Substance: HYDROXYZINE\HYDROXYZINE HYDROCHLORIDE
     Dosage: ONCE;100 MG
     Route: 048
     Dates: start: 20130209, end: 20130209
  69. HYDROXYZINE [Concomitant]
     Active Substance: HYDROXYZINE\HYDROXYZINE HYDROCHLORIDE
     Dosage: ONCE;100 MG
     Route: 048
     Dates: start: 20130310, end: 20130310
  70. IBUPROFEN. [Concomitant]
     Active Substance: IBUPROFEN
     Indication: MUSCULOSKELETAL PAIN
     Dosage: 400 MG ONCE
     Route: 048
     Dates: start: 20121230, end: 20121230
  71. IBUPROFEN. [Concomitant]
     Active Substance: IBUPROFEN
     Indication: TOOTHACHE
     Dosage: 400 MG ONCE
     Route: 048
     Dates: start: 20130102, end: 20130102

REACTIONS (3)
  - Drug screen positive [Unknown]
  - Substance abuse [Unknown]
  - Injection site nodule [Unknown]

NARRATIVE: CASE EVENT DATE: 20150428
